FAERS Safety Report 14503188 (Version 2)
Quarter: 2018Q3

REPORT INFORMATION
  Report Type: Spontaneous
  Country: US (occurrence: US)
  Receive Date: 20180208
  Receipt Date: 20180828
  Transmission Date: 20181010
  Serious: No
  Sender: FDA-Public Use
  Company Number: US-PFIZER INC-2018055227

PATIENT
  Age: 57 Year
  Sex: Female

DRUGS (2)
  1. GENOTROPIN [Suspect]
     Active Substance: SOMATROPIN
     Dosage: 0.6 MG, UNK
  2. GENOTROPIN [Suspect]
     Active Substance: SOMATROPIN
     Dosage: 0.5 MG, DAILY
     Dates: start: 20100901

REACTIONS (8)
  - Oedema [Recovering/Resolving]
  - Carbon dioxide abnormal [Unknown]
  - Low density lipoprotein increased [Unknown]
  - Total cholesterol/HDL ratio decreased [Unknown]
  - Blood thyroid stimulating hormone decreased [Unknown]
  - Blood prolactin decreased [Unknown]
  - Blood glucose increased [Unknown]
  - Pain [Recovering/Resolving]

NARRATIVE: CASE EVENT DATE: 20180612
